FAERS Safety Report 11513121 (Version 1)
Quarter: 2015Q3

REPORT INFORMATION
  Report Type: Spontaneous
  Country: US (occurrence: US)
  Receive Date: 20150903
  Receipt Date: 20150903
  Transmission Date: 20151125
  Serious: No
  Sender: FDA-Public Use
  Company Number: US-ELI_LILLY_AND_COMPANY-US201209002128

PATIENT
  Sex: Male
  Weight: 65.76 kg

DRUGS (10)
  1. EFFEXOR [Concomitant]
     Active Substance: VENLAFAXINE HYDROCHLORIDE
     Dosage: 75 MG, QD, AM
  2. CYMBALTA [Suspect]
     Active Substance: DULOXETINE HYDROCHLORIDE
     Dosage: 60 MG, QD AM
  3. TYLENOL EXTRA STRENGTH [Concomitant]
     Active Substance: ACETAMINOPHEN
     Dosage: 650 MG, QD
  4. ULTRAM [Concomitant]
     Active Substance: TRAMADOL HYDROCHLORIDE
     Dosage: 150 MG, QD
  5. LYRICA [Concomitant]
     Active Substance: PREGABALIN
     Dosage: 50 MG, PRN
  6. THIAMINE                           /00056101/ [Concomitant]
  7. CYMBALTA [Suspect]
     Active Substance: DULOXETINE HYDROCHLORIDE
     Indication: DEPRESSION
     Dosage: 30 MG, QD AM
  8. LYRICA [Concomitant]
     Active Substance: PREGABALIN
     Dosage: 100 MG, PRN
  9. MUCINEX [Concomitant]
     Active Substance: GUAIFENESIN
     Dosage: 1200 MG, BID
  10. EFFEXOR [Concomitant]
     Active Substance: VENLAFAXINE HYDROCHLORIDE
     Dosage: 150 MG, QD, AM

REACTIONS (5)
  - Dystonia [Recovered/Resolved]
  - Night sweats [Recovered/Resolved]
  - Feeling jittery [Recovered/Resolved]
  - Abnormal dreams [Recovered/Resolved]
  - Pain [Recovered/Resolved]
